FAERS Safety Report 8875061 (Version 3)
Quarter: 2013Q1

REPORT INFORMATION
  Report Type: Report from Study
  Country: RU (occurrence: RU)
  Receive Date: 20121023
  Receipt Date: 20130128
  Transmission Date: 20140127
  Serious: Yes (Death, Hospitalization)
  Sender: FDA-Public Use
  Company Number: RU-ROCHE-1148169

PATIENT
  Age: 41 Year
  Sex: Male

DRUGS (3)
  1. TRASTUZUMAB [Suspect]
     Indication: METASTATIC GASTRIC CANCER
     Route: 065
     Dates: start: 20120116, end: 20121019
  2. CAPECITABINE [Suspect]
     Indication: METASTATIC GASTRIC CANCER
     Route: 048
     Dates: start: 20120116, end: 20121019
  3. CISPLATINE [Concomitant]
     Indication: METASTATIC GASTRIC CANCER
     Route: 065
     Dates: start: 20120116, end: 20121019

REACTIONS (2)
  - Disease progression [Fatal]
  - Ascites [Unknown]
